FAERS Safety Report 23115400 (Version 2)
Quarter: 2023Q4

REPORT INFORMATION
  Report Type: Spontaneous
  Country: DE (occurrence: DE)
  Receive Date: 20231027
  Receipt Date: 20231030
  Transmission Date: 20240110
  Serious: Yes (Other)
  Sender: FDA-Public Use
  Company Number: DE-SANDOZ-SDZ2023DE045933

PATIENT
  Age: 35 Year
  Sex: Female
  Weight: 69 kg

DRUGS (7)
  1. CLADRIBINE [Suspect]
     Active Substance: CLADRIBINE
     Indication: Relapsing multiple sclerosis
     Dosage: 10 MG(FIRST COURSE OF THE SECOND CYCLE)
     Route: 048
     Dates: start: 20220901
  2. CLADRIBINE [Suspect]
     Active Substance: CLADRIBINE
     Dosage: 50 MG
     Route: 048
     Dates: start: 20220919
  3. CLADRIBINE [Suspect]
     Active Substance: CLADRIBINE
     Dosage: 60 MG(FINAL SECOND COURSE OF THE SECOND CYCLE)
     Route: 048
     Dates: start: 20221017
  4. CLADRIBINE [Suspect]
     Active Substance: CLADRIBINE
     Dosage: 60 MG(SECOND COURSE OF THE FIRST OC TREATMENT CYCLE)
     Route: 048
     Dates: start: 20211108
  5. PREDNISOLONE [Suspect]
     Active Substance: PREDNISOLONE
     Indication: Relapsing multiple sclerosis
     Dosage: 400 MG(FOR 3DAYS)
     Route: 048
     Dates: start: 20211027
  6. PEGINTERFERON BETA-1A [Concomitant]
     Active Substance: PEGINTERFERON BETA-1A
     Indication: Multiple sclerosis
     Route: 065
  7. PEGINTERFERON BETA-1A [Concomitant]
     Active Substance: PEGINTERFERON BETA-1A
     Indication: Multiple sclerosis
     Route: 065

REACTIONS (2)
  - Drug-induced liver injury [Unknown]
  - Drug interaction [Unknown]
